FAERS Safety Report 8924954 (Version 1)
Quarter: 2012Q4

REPORT INFORMATION
  Report Type: 
  Country: US (occurrence: US)
  Receive Date: 20121126
  Receipt Date: 20121126
  Transmission Date: 20130627
  Serious: Yes (Hospitalization)
  Sender: FDA-Public Use
  Company Number: US-BAYER-2012-121966

PATIENT
  Age: 21 Year
  Sex: Female
  Weight: 68.03 kg

DRUGS (16)
  1. YAZ [Suspect]
  2. GIANVI [Suspect]
  3. ADDERALL [Concomitant]
     Indication: ADHD
     Dosage: 20 mg, ? to 1 tablet every morning and at noon or early afternoon
     Route: 048
     Dates: start: 20110723, end: 20110730
  4. NAPROXEN [Concomitant]
     Dosage: 500 mg, BID
     Route: 048
     Dates: start: 20110615
  5. PREDNISONE [Concomitant]
     Dosage: 5 mg, take 8 tab daily for 3 d, 6 tab daily for 3 d, 4 tab daily for 3 d, 2 tab daily for 3 d.
     Route: 048
     Dates: start: 20110711
  6. HYDROCODONE/ACETAMINOPHEN [Concomitant]
     Dosage: 5-325, take 1 to 2 tablets every 4 to 6 hours as needed
     Route: 048
     Dates: start: 20110615
  7. OXYCODONE [Concomitant]
  8. STREPTOKINASE [Concomitant]
  9. MIRALAX [Concomitant]
  10. PLAVIX [Concomitant]
  11. PROTONIX [Concomitant]
  12. COMPAZINE [Concomitant]
  13. BENADRYL [Concomitant]
  14. PROMETHAZINE [Concomitant]
  15. UNCODEABLE ^UNCLASSIFIABLE^ [Concomitant]
  16. ZOFRAN [Concomitant]

REACTIONS (2)
  - Deep vein thrombosis [None]
  - Pelvic venous thrombosis [None]
